FAERS Safety Report 8013049-7 (Version None)
Quarter: 2011Q4

REPORT INFORMATION
  Report Type: 
  Country: None (occurrence: None)
  Receive Date: 20111229
  Receipt Date: 20111223
  Transmission Date: 20120403
  Serious: Yes (Disabling)
  Sender: FDA-Public Use
  Company Number: JP-NAPPMUNDI-MAG-2011-0001971

PATIENT
  Sex: Female

DRUGS (1)
  1. OXYCODONE HCL [Suspect]
     Indication: BACK PAIN
     Dosage: 10 MG, Q12H
     Route: 048
     Dates: start: 20110601

REACTIONS (1)
  - DEAFNESS BILATERAL [None]
